FAERS Safety Report 13592858 (Version 2)
Quarter: 2017Q3

REPORT INFORMATION
  Report Type: Report from Study
  Country: US (occurrence: US)
  Receive Date: 20170530
  Receipt Date: 20170707
  Transmission Date: 20171127
  Serious: Yes (Other)
  Sender: FDA-Public Use
  Company Number: US-BAYER-2017-084680

PATIENT
  Age: 73 Year
  Sex: Male

DRUGS (2)
  1. NEXAVAR [Suspect]
     Active Substance: SORAFENIB
     Indication: HEPATOCELLULAR CARCINOMA
     Dosage: 400 MG, BID
     Route: 048
     Dates: start: 20170420, end: 2017
  2. NEXAVAR [Suspect]
     Active Substance: SORAFENIB
     Indication: HEPATOCELLULAR CARCINOMA
     Dosage: UNKNOWN DOSE
     Route: 048

REACTIONS (9)
  - Diarrhoea [Recovering/Resolving]
  - Weight decreased [None]
  - Decreased appetite [None]
  - Ammonia increased [None]
  - Fatigue [Not Recovered/Not Resolved]
  - Sepsis [None]
  - Fatigue [None]
  - Abnormal loss of weight [None]
  - Fatigue [None]

NARRATIVE: CASE EVENT DATE: 2017
